FAERS Safety Report 5875051-0 (Version None)
Quarter: 2008Q3

REPORT INFORMATION
  Report Type: 
  Country: None (occurrence: None)
  Receive Date: 20080908
  Receipt Date: 20080908
  Transmission Date: 20090109
  Serious: Yes (Hospitalization)
  Sender: FDA-Public Use
  Company Number: None

PATIENT
  Age: 57 Year
  Sex: Male
  Weight: 101 kg

DRUGS (14)
  1. AMIFOSTINE [Suspect]
     Indication: NON-HODGKIN'S LYMPHOMA
     Dosage: 740 MG DAILY M2 IV
     Route: 042
     Dates: start: 20080221, end: 20080227
  2. MELPHALAN [Suspect]
     Indication: NON-HODGKIN'S LYMPHOMA
     Dosage: 240 MG ONCE M2 IV
     Route: 042
     Dates: start: 20080227
  3. ACYCLOVIR [Concomitant]
  4. ADVAIR DISKUS 100/50 [Concomitant]
  5. ATIVAN [Concomitant]
  6. CALCIUM CARBONATE [Concomitant]
  7. CITALOPRAM HYDROBROMIDE [Concomitant]
  8. FLOMAX [Concomitant]
  9. LOPERAMIDE HCL [Concomitant]
  10. MAGNESIUM SULFATE [Concomitant]
  11. MOXIFLOXACIN HCL [Concomitant]
  12. OMEPRAZOLE [Concomitant]
  13. POTASSIUM CHLORIDE [Concomitant]
  14. VORICONAZOLE [Concomitant]

REACTIONS (4)
  - DISEASE PROGRESSION [None]
  - DYSPNOEA [None]
  - LYMPHADENOPATHY MEDIASTINAL [None]
  - PLEURAL EFFUSION [None]
